FAERS Safety Report 10958276 (Version 1)
Quarter: 2015Q1

REPORT INFORMATION
  Report Type: Other
  Country: JP (occurrence: JP)
  Receive Date: 20150326
  Receipt Date: 20150326
  Transmission Date: 20150721
  Serious: Yes (Death, Hospitalization)
  Sender: FDA-Public Use
  Company Number: JP-ENDO PHARMACEUTICALS INC-2015-000174

PATIENT
  Age: 63 Year
  Sex: Male

DRUGS (3)
  1. MYCOPHENOLATE MOFETIL CAPSULES [Suspect]
     Active Substance: MYCOPHENOLATE MOFETIL
     Indication: IMMUNOSUPPRESSION
     Route: 065
  2. PREDNISONE TABLETS [Suspect]
     Active Substance: PREDNISONE
     Indication: IMMUNOSUPPRESSION
     Route: 065
  3. CYCLOSPORINE. [Suspect]
     Active Substance: CYCLOSPORINE
     Indication: IMMUNOSUPPRESSION
     Route: 065

REACTIONS (2)
  - Skin cancer [Not Recovered/Not Resolved]
  - Metastatic neoplasm [Fatal]
